FAERS Safety Report 7132910-9 (Version None)
Quarter: 2010Q4

REPORT INFORMATION
  Report Type: 
  Country: None (occurrence: None)
  Receive Date: 20101202
  Receipt Date: 20101129
  Transmission Date: 20110411
  Serious: No
  Sender: FDA-Public Use
  Company Number: US-PFIZER INC-2010159776

PATIENT
  Sex: Male
  Weight: 83.9 kg

DRUGS (10)
  1. CHANTIX [Suspect]
     Indication: SMOKING CESSATION THERAPY
     Dosage: 0.5 MG, 1X/DAY
     Route: 048
     Dates: start: 20101101, end: 20101101
  2. CHANTIX [Suspect]
     Dosage: 1 MG, 2X/DAY
     Dates: start: 20101101
  3. PERCOCET [Suspect]
     Indication: PAIN
     Dosage: 5/325 MG, AS NEEDED
     Route: 048
     Dates: end: 20101127
  4. PERCOCET [Suspect]
     Dosage: 10/325 MG, AS NEEDED
     Route: 048
     Dates: start: 20101001, end: 20101127
  5. METFORMIN [Concomitant]
     Indication: DIABETES MELLITUS
     Dosage: UNK
  6. GLIPIZIDE [Concomitant]
     Indication: DIABETES MELLITUS
     Dosage: UNK
  7. LISINOPRIL [Concomitant]
     Indication: HYPERTENSION
     Dosage: UNK
  8. METOPROLOL [Concomitant]
     Indication: HYPERTENSION
     Dosage: UNK
  9. CYMBALTA [Concomitant]
     Dosage: UNK
  10. ZOCOR [Concomitant]
     Dosage: UNK

REACTIONS (1)
  - DRUG INEFFECTIVE [None]
